FAERS Safety Report 4717797-3 (Version None)
Quarter: 2005Q3

REPORT INFORMATION
  Report Type: 
  Country: None (occurrence: None)
  Receive Date: 20050718
  Receipt Date: 20050718
  Transmission Date: 20060218
  Serious: Yes (Hospitalization)
  Sender: FDA-Public Use
  Company Number: None

PATIENT
  Age: 74 Year
  Sex: Male
  Weight: 92.5338 kg

DRUGS (1)
  1. LITHIUM CARBONATE [Suspect]
     Indication: BIPOLAR DISORDER
     Dosage: 300 MG TID ORAL
     Route: 048

REACTIONS (5)
  - AGITATION [None]
  - ALCOHOL USE [None]
  - CONFUSIONAL STATE [None]
  - DRUG TOXICITY [None]
  - RENAL FAILURE ACUTE [None]
